FAERS Safety Report 24584265 (Version 2)
Quarter: 2025Q2

REPORT INFORMATION
  Report Type: Spontaneous
  Country: US (occurrence: US)
  Receive Date: 20241106
  Receipt Date: 20250417
  Transmission Date: 20250717
  Serious: No
  Sender: DAIICHI
  Company Number: CID000000000030722

PATIENT
  Sex: Female

DRUGS (3)
  1. TURALIO [Suspect]
     Active Substance: PEXIDARTINIB HYDROCHLORIDE
     Indication: Connective tissue neoplasm
     Dosage: 125 MG, QD
     Route: 048
     Dates: start: 20241013
  2. TURALIO [Suspect]
     Active Substance: PEXIDARTINIB HYDROCHLORIDE
     Indication: Soft tissue neoplasm
     Dosage: 125 MG, BID (125MG; ONE CAPSULE TWICE DAILY)
     Route: 048
     Dates: start: 20241127
  3. TURALIO [Suspect]
     Active Substance: PEXIDARTINIB HYDROCHLORIDE
     Dosage: 250 MG, BID (125MG, 2 CAPSULES TWICE DAILY)
     Route: 048

REACTIONS (5)
  - Fatigue [Recovered/Resolved]
  - Fatigue [Recovered/Resolved]
  - Headache [Recovered/Resolved]
  - Sleep disorder [Recovered/Resolved]
  - Therapy change [Unknown]
